FAERS Safety Report 7999450-6 (Version None)
Quarter: 2011Q4

REPORT INFORMATION
  Report Type: 
  Country: None (occurrence: None)
  Receive Date: 20111221
  Receipt Date: 20111212
  Transmission Date: 20120403
  Serious: Yes (Disabling)
  Sender: FDA-Public Use
  Company Number: US-ASTRAZENECA-2010SE38306

PATIENT
  Age: 65 Year
  Sex: Male

DRUGS (6)
  1. LABETALOL HCL [Concomitant]
  2. LIPITOR [Concomitant]
  3. ACTOS [Concomitant]
  4. STARLIX [Concomitant]
  5. SEROQUEL [Suspect]
     Route: 048
  6. PHENOBARBITAL TAB [Concomitant]

REACTIONS (2)
  - BLINDNESS [None]
  - SPEECH DISORDER [None]
